FAERS Safety Report 25761830 (Version 2)
Quarter: 2025Q4

REPORT INFORMATION
  Report Type: Spontaneous
  Country: US (occurrence: US)
  Receive Date: 20250904
  Receipt Date: 20251010
  Transmission Date: 20260118
  Serious: No
  Sender: ABBVIE
  Company Number: US-ABBVIE-6443673

PATIENT

DRUGS (2)
  1. SYNTHROID [Suspect]
     Active Substance: LEVOTHYROXINE SODIUM
     Indication: Autoimmune thyroiditis
     Route: 048
     Dates: start: 2022
  2. SYNTHROID [Suspect]
     Active Substance: LEVOTHYROXINE SODIUM
     Indication: Autoimmune thyroiditis
     Route: 048

REACTIONS (6)
  - Off label use [Unknown]
  - Tremor [Recovered/Resolved]
  - Feeling jittery [Unknown]
  - Pain [Recovering/Resolving]
  - Abnormal weight gain [Recovered/Resolved]
  - Energy increased [Recovered/Resolved]
